FAERS Safety Report 13865259 (Version 1)
Quarter: 2017Q3

REPORT INFORMATION
  Report Type: Spontaneous
  Country: RU (occurrence: RU)
  Receive Date: 20170814
  Receipt Date: 20170814
  Transmission Date: 20171127
  Serious: Yes (Other)
  Sender: FDA-Public Use
  Company Number: RU-ASTRAZENECA-2017SE81741

PATIENT
  Age: 65 Year
  Sex: Female
  Weight: 63 kg

DRUGS (2)
  1. VEROSPIRON [Concomitant]
     Active Substance: SPIRONOLACTONE
  2. BRILINTA [Suspect]
     Active Substance: TICAGRELOR
     Indication: MYOCARDIAL INFARCTION
     Route: 048
     Dates: start: 201704, end: 201705

REACTIONS (4)
  - Insomnia [Recovered/Resolved]
  - Dyspnoea [Recovered/Resolved]
  - Type 1 diabetes mellitus [Recovered/Resolved]
  - Feeding disorder [Recovered/Resolved]

NARRATIVE: CASE EVENT DATE: 201704
